FAERS Safety Report 4486537-8 (Version None)
Quarter: 2004Q4

REPORT INFORMATION
  Report Type: 
  Country: None (occurrence: None)
  Receive Date: 20041021
  Receipt Date: 20041007
  Transmission Date: 20050328
  Serious: Yes (Hospitalization)
  Sender: FDA-Public Use
  Company Number: 2004228819JP

PATIENT
  Age: 51 Year
  Sex: Female
  Weight: 47 kg

DRUGS (5)
  1. AZULFIDINE EN (SULPHASALAZINE) TABLET [Suspect]
     Indication: RHEUMATOID ARTHRITIS
     Dosage: SEE IMAGE
     Route: 048
     Dates: start: 20040706, end: 20040806
  2. AZULFIDINE EN (SULPHASALAZINE) TABLET [Suspect]
     Indication: RHEUMATOID ARTHRITIS
     Dosage: SEE IMAGE
     Route: 048
     Dates: start: 20040809, end: 20040810
  3. HERBESSER (DILTIAZEM HYDROCHLORIDE) CAPSULE [Suspect]
     Indication: ANGINA PECTORIS
     Dosage: 100 MG, QD, ORAL
     Route: 048
  4. RIMATIL (BUCILLAMINE) [Suspect]
     Indication: RHEUMATOID ARTHRITIS
     Dosage: 100 MG, QD, ORAL
     Route: 048
     Dates: start: 20040604, end: 20040625
  5. BAYASPIRINA (ACETYLSALICYLIC ACID) CAPSULE [Suspect]
     Indication: ANGINA PECTORIS
     Dosage: 100 MG/DAY, ORAL
     Route: 048

REACTIONS (2)
  - PHARYNGITIS [None]
  - PYREXIA [None]
